FAERS Safety Report 17537059 (Version 1)
Quarter: 2020Q1

REPORT INFORMATION
  Report Type: Spontaneous
  Country: FR (occurrence: FR)
  Receive Date: 20200313
  Receipt Date: 20200313
  Transmission Date: 20200409
  Serious: Yes (Other)
  Sender: FDA-Public Use
  Company Number: FR-ACCORD-175708

PATIENT
  Age: 36 Year
  Sex: Female

DRUGS (11)
  1. OXALIPLATIN ACCORD [Suspect]
     Active Substance: OXALIPLATIN
     Indication: B-CELL LYMPHOMA
     Dosage: 5 MG / ML
     Route: 042
     Dates: start: 20200117, end: 20200117
  2. LANSOPRAZOLE. [Concomitant]
     Active Substance: LANSOPRAZOLE
     Route: 048
     Dates: start: 20200116
  3. ORACILLIN [Concomitant]
     Route: 048
     Dates: start: 20200116
  4. RIXATHON [Suspect]
     Active Substance: RITUXIMAB
     Indication: B-CELL LYMPHOMA
     Route: 042
     Dates: start: 20200116, end: 20200116
  5. DEXAMETHASONE. [Suspect]
     Active Substance: DEXAMETHASONE
     Indication: B-CELL LYMPHOMA
     Route: 048
     Dates: start: 20200117, end: 20200120
  6. LAROXYL [Concomitant]
     Active Substance: AMITRIPTYLINE HYDROCHLORIDE
     Route: 048
     Dates: start: 20200116
  7. MAXIDEX [Concomitant]
     Active Substance: DEXAMETHASONE
     Dosage: EYE DROPS
     Route: 047
     Dates: start: 20200116
  8. CYTARABINE ACCORD [Suspect]
     Active Substance: CYTARABINE
     Indication: B-CELL LYMPHOMA
     Dosage: 100 MG/ML
     Route: 042
     Dates: start: 20200117, end: 20200118
  9. BACTRIM [Concomitant]
     Active Substance: SULFAMETHOXAZOLE\TRIMETHOPRIM
     Indication: PROPHYLAXIS
     Route: 048
     Dates: start: 20200120, end: 20200206
  10. ZELITREX [Concomitant]
     Active Substance: VALACYCLOVIR HYDROCHLORIDE
     Dosage: 500 MG, COATED TABLET
     Route: 048
     Dates: start: 20200116
  11. SPECIAFOLDINE [Concomitant]
     Active Substance: FOLIC ACID
     Indication: VITAMIN SUPPLEMENTATION
     Route: 048
     Dates: start: 20200120, end: 20200206

REACTIONS (2)
  - Off label use [Unknown]
  - Hepatitis cholestatic [Recovering/Resolving]

NARRATIVE: CASE EVENT DATE: 20200205
